FAERS Safety Report 16531293 (Version 5)
Quarter: 2019Q3

REPORT INFORMATION
  Report Type: Report from Study
  Country: CO (occurrence: CO)
  Receive Date: 20190704
  Receipt Date: 20190827
  Transmission Date: 20191004
  Serious: Yes (Hospitalization)
  Sender: FDA-Public Use
  Company Number: CO-ASTELLAS-2019US027427

PATIENT
  Age: 45 Year
  Sex: Female
  Weight: 58 kg

DRUGS (13)
  1. RANITIDINE. [Concomitant]
     Active Substance: RANITIDINE
     Indication: RENAL TRANSPLANT
     Route: 048
     Dates: start: 20190523
  2. TACROLIMUS. [Suspect]
     Active Substance: TACROLIMUS
     Route: 048
     Dates: start: 20190808
  3. TACROLIMUS. [Suspect]
     Active Substance: TACROLIMUS
     Indication: RENAL TRANSPLANT
     Dosage: 8 MG,(1 CAPSULE OF 5MG AND 3 CAPSULES OF 1MG) ONCE DAILY
     Route: 048
     Dates: start: 20190523, end: 201906
  4. MYCOPHENOLATE [Concomitant]
     Active Substance: MYCOPHENOLIC ACID
     Indication: RENAL TRANSPLANT
     Dosage: UNK UNK, UNKNOWN FREQ.
     Route: 048
     Dates: start: 20190523
  5. VALGANCICLOVIR. [Concomitant]
     Active Substance: VALGANCICLOVIR
     Route: 048
     Dates: start: 20190730
  6. TACROLIMUS. [Suspect]
     Active Substance: TACROLIMUS
     Dosage: 10 MG,(1 CAPSULE OF 5MG AND 5 CAPSULES OF 1MG) ONCE DAILY
     Route: 048
     Dates: start: 201906, end: 20190729
  7. PREDNISOLONE. [Concomitant]
     Active Substance: PREDNISOLONE
     Indication: RENAL TRANSPLANT
     Dosage: 2 DF, AFTER BREAKFAST
     Route: 048
     Dates: start: 20190523
  8. FOLIC ACID. [Concomitant]
     Active Substance: FOLIC ACID
     Indication: RENAL TRANSPLANT
     Route: 048
     Dates: start: 20190523
  9. TACROLIMUS. [Suspect]
     Active Substance: TACROLIMUS
     Route: 048
     Dates: start: 20190730, end: 20190807
  10. NYSTATIN. [Concomitant]
     Active Substance: NYSTATIN
     Indication: RENAL TRANSPLANT
     Dosage: UNK UNK, RINSE AFTER MEALS
     Route: 048
     Dates: start: 20190523
  11. ACYCLOVIR                          /00587301/ [Concomitant]
     Active Substance: ACYCLOVIR
     Indication: PRODUCT USED FOR UNKNOWN INDICATION
     Route: 048
     Dates: start: 20190523
  12. NITROFURANTOIN. [Concomitant]
     Active Substance: NITROFURANTOIN
     Indication: RENAL TRANSPLANT
     Route: 048
     Dates: start: 20190523
  13. VALGANCICLOVIR. [Concomitant]
     Active Substance: VALGANCICLOVIR
     Indication: RENAL TRANSPLANT
     Route: 048
     Dates: start: 20190620, end: 20190623

REACTIONS (10)
  - Pain in extremity [Not Recovered/Not Resolved]
  - Immunosuppressant drug level decreased [Unknown]
  - Hypotension [Recovered/Resolved]
  - Psychiatric symptom [Recovered/Resolved]
  - Graft complication [Recovered/Resolved]
  - Eye pain [Not Recovered/Not Resolved]
  - Malaise [Recovered/Resolved]
  - Immunosuppressant drug level increased [Unknown]
  - Blood potassium decreased [Recovered/Resolved]
  - Headache [Recovering/Resolving]

NARRATIVE: CASE EVENT DATE: 201905
